FAERS Safety Report 25905489 (Version 3)
Quarter: 2025Q4

REPORT INFORMATION
  Report Type: Spontaneous
  Country: US (occurrence: US)
  Receive Date: 20251010
  Receipt Date: 20251211
  Transmission Date: 20260118
  Serious: No
  Sender: CIPLA
  Company Number: US-CIPLA LTD.-2025US12285

PATIENT

DRUGS (2)
  1. ALBUTEROL [Suspect]
     Active Substance: ALBUTEROL
     Indication: Dyspnoea
     Dosage: UNK
     Route: 065
     Dates: start: 202409
  2. ALBUTEROL [Suspect]
     Active Substance: ALBUTEROL
     Dosage: UNK, PRN (BRAND NEW INHALER)
     Route: 065
     Dates: start: 20250925

REACTIONS (2)
  - Incorrect dose administered by device [Unknown]
  - Device delivery system issue [Unknown]

NARRATIVE: CASE EVENT DATE: 20250925
